FAERS Safety Report 8130473-2 (Version None)
Quarter: 2012Q1

REPORT INFORMATION
  Report Type: 
  Country: None (occurrence: None)
  Receive Date: 20120210
  Receipt Date: 20120202
  Transmission Date: 20120608
  Serious: Yes (Death, Hospitalization)
  Sender: FDA-Public Use
  Company Number: FR-MERCK-1202USA00971

PATIENT
  Age: 87 Year
  Sex: Female

DRUGS (10)
  1. ROCEPHIN [Concomitant]
     Indication: PYELONEPHRITIS
     Route: 042
     Dates: start: 20111225, end: 20111227
  2. POTASSIUM CHLORIDE [Concomitant]
     Route: 048
     Dates: end: 20120104
  3. AMIKACIN [Concomitant]
     Indication: PYELONEPHRITIS
     Route: 042
     Dates: start: 20111228, end: 20111228
  4. ESIDRIX [Concomitant]
     Indication: HYPERTENSION
     Route: 048
     Dates: end: 20120104
  5. INVANZ [Suspect]
     Indication: PYELONEPHRITIS
     Route: 042
     Dates: start: 20111228, end: 20120103
  6. CEFTRIAXONE SODIUM [Concomitant]
     Indication: PYELONEPHRITIS
     Route: 065
  7. ZOLPIDEM [Concomitant]
     Route: 048
     Dates: end: 20120103
  8. IRBESARTAN [Concomitant]
     Indication: HYPERTENSION
     Route: 048
     Dates: end: 20111228
  9. LEVOFLOXACIN [Concomitant]
     Indication: PYELONEPHRITIS
     Route: 048
     Dates: start: 20111225, end: 20111225
  10. METOPROLOL TARTRATE [Concomitant]
     Indication: HYPERTENSION
     Route: 048
     Dates: end: 20120104

REACTIONS (3)
  - STATUS EPILEPTICUS [None]
  - CONVULSION [None]
  - COMA [None]
